FAERS Safety Report 5085594-8 (Version None)
Quarter: 2006Q3

REPORT INFORMATION
  Report Type: 
  Country: None (occurrence: None)
  Receive Date: 20060822
  Receipt Date: 20060601
  Transmission Date: 20061208
  Serious: Yes (Disabling)
  Sender: FDA-Public Use
  Company Number: GB-GLAXOSMITHKLINE-B0426062A

PATIENT
  Age: 75 Year
  Sex: Male

DRUGS (2)
  1. SEROXAT [Suspect]
     Indication: DEPRESSION
     Route: 048
     Dates: start: 19950101
  2. NO CONCURRENT MEDICATION [Concomitant]

REACTIONS (2)
  - AFFECTIVE DISORDER [None]
  - DEPRESSION [None]
